FAERS Safety Report 5052770-X (Version None)
Quarter: 2006Q3

REPORT INFORMATION
  Report Type: 
  Country: None (occurrence: None)
  Receive Date: 20060717
  Receipt Date: 20060706
  Transmission Date: 20061208
  Serious: Yes (Hospitalization)
  Sender: FDA-Public Use
  Company Number: CA-ROCHE-454656

PATIENT
  Age: 38 Year
  Sex: Male

DRUGS (3)
  1. PEGASYS [Suspect]
     Indication: HEPATITIS C
     Dosage: DOSE FORM: PRE-FILLED SYRINGE
     Route: 058
     Dates: start: 20051018, end: 20060318
  2. COPEGUS [Suspect]
     Indication: HEPATITIS C
     Route: 048
     Dates: start: 20051018, end: 20060318
  3. METHADONE HCL [Concomitant]
     Indication: DRUG DETOXIFICATION
     Route: 048

REACTIONS (5)
  - FATIGUE [None]
  - HAEMOGLOBIN DECREASED [None]
  - HYPOCALCAEMIA [None]
  - PNEUMONIA [None]
  - RHABDOMYOLYSIS [None]
